FAERS Safety Report 20602898 (Version 1)
Quarter: 2022Q1

REPORT INFORMATION
  Report Type: Other
  Country: US (occurrence: None)
  Receive Date: 20220316
  Receipt Date: 20220316
  Transmission Date: 20220423
  Serious: No
  Sender: FDA-Public Use
  Company Number: US-ROCHE-3048408

PATIENT
  Sex: Female
  Weight: 66.783 kg

DRUGS (20)
  1. OCREVUS [Suspect]
     Active Substance: OCRELIZUMAB
     Indication: Relapsing multiple sclerosis
     Dosage: DAY 1 AND 600 MG IV EVERY 6 MONTHS
     Route: 042
  2. VALIUM [Suspect]
     Active Substance: DIAZEPAM
     Indication: Product used for unknown indication
     Route: 048
  3. COPAXONE [Concomitant]
     Active Substance: GLATIRAMER ACETATE
  4. AMPYRA [Concomitant]
     Active Substance: DALFAMPRIDINE
  5. TECFIDERA [Concomitant]
     Active Substance: DIMETHYL FUMARATE
  6. GILENYA [Concomitant]
     Active Substance: FINGOLIMOD HYDROCHLORIDE
  7. BENADRYL [Concomitant]
     Active Substance: DIPHENHYDRAMINE HYDROCHLORIDE
     Indication: Product used for unknown indication
     Route: 048
  8. ROSUVASTATIN [Concomitant]
     Active Substance: ROSUVASTATIN
     Indication: Product used for unknown indication
     Route: 048
  9. SOLU-MEDROL [Concomitant]
     Active Substance: METHYLPREDNISOLONE SODIUM SUCCINATE
     Indication: Product used for unknown indication
     Dosage: 40 MG INJECTION
     Route: 042
  10. TYLENOL [Concomitant]
     Active Substance: ACETAMINOPHEN
     Indication: Product used for unknown indication
     Route: 048
  11. VITAMIN B12 [Concomitant]
     Active Substance: CYANOCOBALAMIN
     Indication: Product used for unknown indication
     Route: 048
  12. VITAMIN D3 [Concomitant]
     Active Substance: CHOLECALCIFEROL
  13. ACETAMINOPHEN [Concomitant]
     Active Substance: ACETAMINOPHEN
  14. LORATADINE [Concomitant]
     Active Substance: LORATADINE
  15. DIPHENHYDRAMINE [Concomitant]
     Active Substance: DIPHENHYDRAMINE
  16. TORADOL [Concomitant]
     Active Substance: KETOROLAC TROMETHAMINE
  17. DEXAMETHASONE [Concomitant]
     Active Substance: DEXAMETHASONE
  18. ZOFRAN [Concomitant]
     Active Substance: ONDANSETRON HYDROCHLORIDE
  19. METHYLPREDNISOLONE [Concomitant]
     Active Substance: METHYLPREDNISOLONE
  20. FLUOXETINE [Concomitant]
     Active Substance: FLUOXETINE HYDROCHLORIDE
     Indication: Product used for unknown indication
     Route: 048

REACTIONS (12)
  - Hypometabolism [Unknown]
  - Balance disorder [Unknown]
  - Blood cholesterol increased [Unknown]
  - Weight increased [Unknown]
  - Neck pain [Unknown]
  - Ill-defined disorder [Unknown]
  - Saccadic eye movement [Unknown]
  - Dysarthria [Unknown]
  - Muscle spasticity [Unknown]
  - Varicella virus test positive [Unknown]
  - JC polyomavirus test positive [Unknown]
  - Fatigue [Unknown]
